FAERS Safety Report 7760705-1 (Version None)
Quarter: 2011Q3

REPORT INFORMATION
  Report Type: 
  Country: None (occurrence: None)
  Receive Date: 20110919
  Receipt Date: 20110908
  Transmission Date: 20111222
  Serious: Yes (Other)
  Sender: FDA-Public Use
  Company Number: TR-BAXTER-2011BH029040

PATIENT
  Age: 44 Year
  Sex: Female

DRUGS (3)
  1. ATROPINE [Suspect]
     Indication: VENTRICULAR EXTRASYSTOLES
     Route: 040
  2. DOBUTAMINE HCL [Suspect]
     Indication: CARDIAC ELECTROPHYSIOLOGIC STUDY
     Route: 042
  3. SODIUM CHLORIDE [Concomitant]
     Indication: HYPOTENSION
     Route: 042

REACTIONS (1)
  - STRESS CARDIOMYOPATHY [None]
